FAERS Safety Report 9993711 (Version 1)
Quarter: 2014Q1

REPORT INFORMATION
  Report Type: Spontaneous
  Country: JP (occurrence: JP)
  Receive Date: 20140310
  Receipt Date: 20140310
  Transmission Date: 20141002
  Serious: Yes (Other)
  Sender: FDA-Public Use
  Company Number: PHJP2014JP000598

PATIENT
  Sex: Male

DRUGS (3)
  1. CARBAMAZEPINE [Suspect]
     Indication: PAIN
     Dosage: 100 MG, DAILY
     Route: 048
  2. TRAZODONE HYDROCHLORIDE [Suspect]
     Dosage: 25 MG, UNK
  3. PREGABALIN [Suspect]
     Indication: PAIN
     Dosage: 25 MG, FOR 2 WEEKS

REACTIONS (10)
  - Cerebral infarction [Unknown]
  - Hemiplegia [Unknown]
  - Pain in extremity [Unknown]
  - Musculoskeletal discomfort [Unknown]
  - Gait disturbance [Unknown]
  - Dizziness [Unknown]
  - Somnolence [Unknown]
  - Thirst [Unknown]
  - Pain [Unknown]
  - Drug ineffective [Unknown]
